FAERS Safety Report 4661984-X (Version None)
Quarter: 2005Q2

REPORT INFORMATION
  Report Type: 
  Country: None (occurrence: None)
  Receive Date: 20050512
  Receipt Date: 20050506
  Transmission Date: 20051028
  Serious: Yes (Hospitalization, Other)
  Sender: FDA-Public Use
  Company Number: USA-2004-0014912

PATIENT
  Age: 47 Year
  Sex: Male

DRUGS (4)
  1. OXYCONTIN [Suspect]
     Indication: PAIN
     Dosage: SEE IMAGE
  2. LORCET-HD [Concomitant]
  3. RESTORIL [Concomitant]
  4. VICOPROFEN [Concomitant]

REACTIONS (25)
  - ABDOMINAL PAIN LOWER [None]
  - ANXIETY [None]
  - ARTHRALGIA [None]
  - BACK PAIN [None]
  - CALCULUS URETERIC [None]
  - CONSTIPATION [None]
  - DELUSIONAL DISORDER, UNSPECIFIED TYPE [None]
  - DEPRESSION [None]
  - DISEASE RECURRENCE [None]
  - DRUG DEPENDENCE [None]
  - DRUG INEFFECTIVE [None]
  - DRUG WITHDRAWAL SYNDROME [None]
  - HOT FLUSH [None]
  - INADEQUATE ANALGESIA [None]
  - MALAISE [None]
  - MUSCLE SPASMS [None]
  - NAUSEA [None]
  - OBSESSIVE-COMPULSIVE DISORDER [None]
  - PAIN [None]
  - PARANOIA [None]
  - RENAL COLIC [None]
  - RHEUMATOID ARTHRITIS [None]
  - SLEEP DISORDER [None]
  - TESTICULAR PAIN [None]
  - VOMITING [None]
